FAERS Safety Report 9706309 (Version 2)
Quarter: 2013Q4

REPORT INFORMATION
  Report Type: Report from Study
  Country: CZ (occurrence: CZ)
  Receive Date: 20131125
  Receipt Date: 20131209
  Transmission Date: 20140711
  Serious: Yes (Death)
  Sender: FDA-Public Use
  Company Number: CZ-BIOGENIDEC-2013BI113938

PATIENT
  Age: 24 Year
  Sex: Male

DRUGS (6)
  1. TYSABRI [Suspect]
     Indication: MULTIPLE SCLEROSIS
     Route: 042
     Dates: start: 20110401, end: 20130619
  2. TYSABRI [Suspect]
     Indication: RELAPSING-REMITTING MULTIPLE SCLEROSIS
     Route: 042
     Dates: start: 20110401, end: 20130619
  3. OLWEXYA [Concomitant]
     Indication: DEPRESSION
     Route: 048
     Dates: start: 20120319
  4. LYRICA [Concomitant]
     Indication: DEPRESSION
     Route: 048
     Dates: start: 20120823
  5. PANTOPRAZOL [Concomitant]
     Indication: PROPHYLAXIS AGAINST GASTROINTESTINAL ULCER
     Route: 048
     Dates: start: 20110401
  6. ITOPRID [Concomitant]
     Indication: PROPHYLAXIS AGAINST GASTROINTESTINAL ULCER
     Route: 048
     Dates: start: 20130619

REACTIONS (1)
  - Completed suicide [Fatal]
